FAERS Safety Report 6557961-4 (Version None)
Quarter: 2010Q1

REPORT INFORMATION
  Report Type: 
  Country: None (occurrence: None)
  Receive Date: 20100129
  Receipt Date: 20100121
  Transmission Date: 20100710
  Serious: Yes (Other)
  Sender: FDA-Public Use
  Company Number: PE-BAYER-201010837LA

PATIENT
  Age: 24 Year
  Sex: Female
  Weight: 88 kg

DRUGS (3)
  1. YASMIN [Suspect]
     Indication: CONTRACEPTION
     Route: 048
     Dates: start: 20100112, end: 20100120
  2. YASMIN [Suspect]
     Route: 048
     Dates: start: 20060101
  3. ORAL CONTRACEPTIVE NOS [Concomitant]
     Indication: POST COITAL CONTRACEPTION
     Route: 048

REACTIONS (5)
  - ANGINA PECTORIS [None]
  - DECREASED APPETITE [None]
  - DYSPNOEA [None]
  - HEART RATE INCREASED [None]
  - TREMOR [None]
